FAERS Safety Report 10602268 (Version 3)
Quarter: 2014Q4

REPORT INFORMATION
  Report Type: Spontaneous
  Country: JP (occurrence: JP)
  Receive Date: 20141124
  Receipt Date: 20141223
  Transmission Date: 20150529
  Serious: Yes (Other)
  Sender: FDA-Public Use
  Company Number: JP-PFIZER INC-2014317167

PATIENT
  Age: 56 Year
  Sex: Female
  Weight: 43 kg

DRUGS (3)
  1. ZITHROMAC [Suspect]
     Active Substance: AZITHROMYCIN DIHYDRATE
     Indication: BRONCHITIS
     Dosage: 500 MG, DAILY
     Route: 048
     Dates: start: 20141117, end: 20141117
  2. PA [Suspect]
     Active Substance: ASPIRIN\CAFFEINE\PROMETHAZINE\SALICYLAMIDE
     Indication: NASOPHARYNGITIS
     Dosage: 2 DF, 3X/DAY
     Route: 048
     Dates: start: 20141117, end: 20141117
  3. KEISHI-KA-RYUKOTSU-BOREI-TO [Concomitant]
     Indication: ANTITUSSIVE THERAPY
     Dosage: 3 G, 3X/DAY
     Route: 048
     Dates: start: 20141117, end: 20141117

REACTIONS (4)
  - Haematochezia [Recovered/Resolved]
  - Enterocolitis [Recovered/Resolved]
  - Abdominal pain lower [Recovered/Resolved]
  - Diarrhoea haemorrhagic [Recovered/Resolved]

NARRATIVE: CASE EVENT DATE: 20141117
